FAERS Safety Report 24660006 (Version 1)
Quarter: 2024Q4

REPORT INFORMATION
  Report Type: Spontaneous
  Country: US (occurrence: None)
  Receive Date: 20241125
  Receipt Date: 20241125
  Transmission Date: 20250115
  Serious: Yes (Death, Other)
  Sender: Public
  Company Number: None

PATIENT
  Age: 9 Month
  Sex: Female
  Weight: 6.9 kg

DRUGS (1)
  1. HEMANGEOL [Suspect]
     Active Substance: PROPRANOLOL HYDROCHLORIDE
     Indication: Haemangioma
     Dosage: 0.5 ML BID ORAL
     Route: 048
     Dates: start: 20241124, end: 20241125

REACTIONS (1)
  - Vomiting [None]

NARRATIVE: CASE EVENT DATE: 20241124
